FAERS Safety Report 15861554 (Version 1)
Quarter: 2019Q1

REPORT INFORMATION
  Report Type: Spontaneous
  Country: US (occurrence: US)
  Receive Date: 20190123
  Receipt Date: 20190123
  Transmission Date: 20190417
  Serious: Yes (Life-Threatening, Disabling)
  Sender: FDA-Public Use
  Company Number: None

PATIENT
  Age: 45 Month
  Sex: Female

DRUGS (1)
  1. BOTOX [Suspect]
     Active Substance: ONABOTULINUMTOXINA
     Indication: SKIN WRINKLING
     Route: 058

REACTIONS (9)
  - Anxiety [None]
  - Palpitations [None]
  - Muscular weakness [None]
  - Dizziness [None]
  - Nausea [None]
  - Dysphagia [None]
  - Depersonalisation/derealisation disorder [None]
  - Dyspnoea [None]
  - Gastric disorder [None]

NARRATIVE: CASE EVENT DATE: 20170724
